FAERS Safety Report 10057579 (Version 1)
Quarter: 2014Q2

REPORT INFORMATION
  Report Type: Spontaneous
  Country: US (occurrence: US)
  Receive Date: 20140404
  Receipt Date: 20140404
  Transmission Date: 20141212
  Serious: Yes (Other)
  Sender: FDA-Public Use
  Company Number: PHEH2014US006531

PATIENT
  Sex: Female

DRUGS (8)
  1. VALSARTAN [Suspect]
     Dosage: UNK UKN, UNK
  2. DIOVAN HCT [Suspect]
     Indication: HYPERTENSION
  3. PLAVIX [Concomitant]
  4. ASPIRIN [Concomitant]
     Dosage: UNK (81 MG), UNK
  5. METOPROLOL [Concomitant]
  6. MOVE FREE [Concomitant]
  7. FISH OIL [Concomitant]
  8. NIACIN [Concomitant]

REACTIONS (7)
  - Cardiac valve disease [Recovering/Resolving]
  - Vision blurred [Recovering/Resolving]
  - Headache [Recovering/Resolving]
  - Pruritus [Recovering/Resolving]
  - Fatigue [Recovering/Resolving]
  - Abdominal pain upper [Recovering/Resolving]
  - Nausea [Recovering/Resolving]
